FAERS Safety Report 10144841 (Version 1)
Quarter: 2014Q2

REPORT INFORMATION
  Report Type: Spontaneous
  Country: US (occurrence: US)
  Receive Date: 20140430
  Receipt Date: 20140430
  Transmission Date: 20141212
  Serious: No
  Sender: FDA-Public Use
  Company Number: US-SANOFI-AVENTIS-2013SA052058

PATIENT
  Age: 28 Year
  Sex: Female

DRUGS (11)
  1. DEMEROL [Suspect]
     Indication: PRODUCT USED FOR UNKNOWN INDICATION
     Route: 065
  2. HUMIRA [Concomitant]
     Indication: CROHN^S DISEASE
     Dates: start: 20120127, end: 201203
  3. HUMIRA [Concomitant]
     Indication: CROHN^S DISEASE
     Dates: start: 20130222
  4. ZOLOFT [Concomitant]
     Indication: ANXIETY
  5. PROTONIX [Concomitant]
     Indication: GASTROOESOPHAGEAL REFLUX DISEASE
  6. BUSPAR [Concomitant]
  7. MULTIVITAMINS [Concomitant]
  8. LEKOVIT CA [Concomitant]
  9. PREDNISONE [Concomitant]
  10. ASACOL [Concomitant]
  11. ZOLOFT [Concomitant]

REACTIONS (1)
  - Vomiting projectile [Unknown]
